FAERS Safety Report 8877977 (Version 1)
Quarter: 2012Q4

REPORT INFORMATION
  Report Type: 
  Country: US (occurrence: US)
  Receive Date: 20121025
  Receipt Date: 20121025
  Transmission Date: 20130627
  Serious: No
  Sender: FDA-Public Use
  Company Number: US-AMGEN-USASP2012021011

PATIENT
  Age: 36 Year
  Sex: Male
  Weight: 77.1 kg

DRUGS (5)
  1. ENBREL [Suspect]
     Indication: PRODUCT USED FOR UNKNOWN INDICATION
     Dosage: 50 mg, qwk
  2. AUGMENTIN                          /00756801/ [Concomitant]
     Dosage: 250 mg, UNK
  3. NASACORT AQ [Concomitant]
     Dosage: 55 mug, UNK
  4. MULTIVITAMIN                       /00097801/ [Concomitant]
  5. OMEGA 3                            /01334101/ [Concomitant]

REACTIONS (1)
  - Influenza [Unknown]
